FAERS Safety Report 21207822 (Version 2)
Quarter: 2022Q3

REPORT INFORMATION
  Report Type: Report from Study
  Country: CA (occurrence: CA)
  Receive Date: 20220812
  Receipt Date: 20220901
  Transmission Date: 20221027
  Serious: Yes (Life-Threatening, Hospitalization, Other)
  Sender: FDA-Public Use
  Company Number: None

PATIENT
  Age: 51 Year
  Sex: Female

DRUGS (29)
  1. AMLODIPINE BESYLATE [Suspect]
     Active Substance: AMLODIPINE BESYLATE
     Indication: Product used for unknown indication
     Dosage: 1 EVERY 1 DAYS
  2. PREGABALIN [Suspect]
     Active Substance: PREGABALIN
     Indication: Product used for unknown indication
     Dosage: 2 EVERY 1 DAYS
  3. FOLIC ACID [Suspect]
     Active Substance: FOLIC ACID
     Indication: Product used for unknown indication
     Dosage: 1 EVERY 1 DAYS
  4. BACLOFEN [Concomitant]
     Active Substance: BACLOFEN
     Indication: Product used for unknown indication
     Dosage: 2 EVERY 1 DAYS
  5. CELEBREX [Concomitant]
     Active Substance: CELECOXIB
     Indication: Product used for unknown indication
     Route: 048
  6. CIMZIA [Concomitant]
     Active Substance: CERTOLIZUMAB PEGOL
     Indication: Product used for unknown indication
     Route: 058
  7. CONVALLARIA MAJALIS [Concomitant]
     Active Substance: CONVALLARIA MAJALIS
     Indication: Product used for unknown indication
     Dosage: 1 EVERY 1 DAYS
  8. CYMBALTA [Concomitant]
     Active Substance: DULOXETINE HYDROCHLORIDE
     Indication: Product used for unknown indication
     Dosage: 1 EVERY 1 DAYS
  9. DICLOFENAC [Concomitant]
     Active Substance: DICLOFENAC
     Indication: Product used for unknown indication
     Dosage: TOPICAL
  10. ERGOCALCIFEROL [Concomitant]
     Active Substance: ERGOCALCIFEROL
     Indication: Product used for unknown indication
     Dosage: 1 EVERY 1 DAYS
  11. HUMIRA [Concomitant]
     Active Substance: ADALIMUMAB
     Indication: Product used for unknown indication
     Route: 058
  12. IMURAN [Concomitant]
     Active Substance: AZATHIOPRINE
     Indication: Product used for unknown indication
     Route: 048
  13. LEVOTHYROXINE SODIUM [Concomitant]
     Active Substance: LEVOTHYROXINE SODIUM
     Indication: Product used for unknown indication
     Dosage: 1 EVERY 1 DAYS
  14. MELOXICAM [Concomitant]
     Active Substance: MELOXICAM
     Indication: Product used for unknown indication
     Route: 048
  15. METHOTREXATE [Concomitant]
     Active Substance: METHOTREXATE
     Indication: Product used for unknown indication
     Route: 048
  16. METHOTREXATE SODIUM [Concomitant]
     Active Substance: METHOTREXATE SODIUM
     Indication: Product used for unknown indication
     Route: 058
  17. NAPROXEN [Concomitant]
     Active Substance: NAPROXEN
     Indication: Product used for unknown indication
     Route: 048
  18. NEUPOGEN [Concomitant]
     Active Substance: FILGRASTIM
     Indication: Product used for unknown indication
     Route: 042
  19. PANTOPRAZOLE SODIUM [Concomitant]
     Active Substance: PANTOPRAZOLE SODIUM
     Indication: Product used for unknown indication
     Dosage: 1 EVERY 1 DAYS
  20. PLAQUENIL [Concomitant]
     Active Substance: HYDROXYCHLOROQUINE SULFATE
     Indication: Product used for unknown indication
     Route: 048
  21. POTASSIUM [Concomitant]
     Active Substance: POTASSIUM
     Indication: Product used for unknown indication
  22. PROCHLORPERAZINE [Concomitant]
     Active Substance: PROCHLORPERAZINE
     Indication: Product used for unknown indication
     Dosage: 2 EVERY 1 DAYS
  23. ZOPICLONE [Concomitant]
     Active Substance: ZOPICLONE
     Indication: Product used for unknown indication
     Dosage: 1 EVERY 1 DAYS
  24. MORPHINE W/BACLOFEN [Concomitant]
  25. LEUCOVORIN CALCIUM [Suspect]
     Active Substance: LEUCOVORIN CALCIUM
     Indication: Product used for unknown indication
     Dosage: 1 EVERY 1 DAYS
  26. PREDNISONE [Concomitant]
     Active Substance: PREDNISONE
     Route: 048
  27. TYLENOL [Concomitant]
     Active Substance: ACETAMINOPHEN
  28. PREGABALIN [Suspect]
     Active Substance: PREGABALIN
     Indication: Product used for unknown indication
     Dosage: 2 EVERY 1 DAYS
  29. ZOPICLONE [Concomitant]
     Active Substance: ZOPICLONE
     Indication: Product used for unknown indication
     Dosage: 1 EVERY 1 DAYS

REACTIONS (42)
  - Arthralgia [Unknown]
  - Asthma [Unknown]
  - Back pain [Unknown]
  - Chromaturia [Unknown]
  - Contusion [Unknown]
  - Fatigue [Unknown]
  - Haemorrhage [Unknown]
  - Hypoaesthesia [Unknown]
  - Infusion site pain [Unknown]
  - Intervertebral disc degeneration [Unknown]
  - Iritis [Unknown]
  - Maternal exposure during pregnancy [Unknown]
  - Migraine [Unknown]
  - Nasal ulcer [Unknown]
  - Nausea [Unknown]
  - Osteitis [Unknown]
  - Pain in extremity [Unknown]
  - Palpitations [Unknown]
  - Peripheral swelling [Unknown]
  - Psoriasis [Unknown]
  - Vaginal haemorrhage [Unknown]
  - Vomiting [Unknown]
  - Anaphylactic reaction [Unknown]
  - Aphthous ulcer [Unknown]
  - Arthritis [Unknown]
  - Chorioretinitis [Unknown]
  - Condition aggravated [Unknown]
  - Decreased eye contact [Unknown]
  - Eye allergy [Unknown]
  - Infection [Unknown]
  - Influenza like illness [Unknown]
  - Joint swelling [Unknown]
  - Oropharyngeal pain [Unknown]
  - Pain [Unknown]
  - Psoriatic arthropathy [Unknown]
  - Rash [Unknown]
  - Rash erythematous [Unknown]
  - Raynaud^s phenomenon [Unknown]
  - Respiratory tract infection [Unknown]
  - Sinusitis [Unknown]
  - Spinal osteoarthritis [Unknown]
  - Urine analysis abnormal [Unknown]
